FAERS Safety Report 9320055 (Version 1)
Quarter: 2013Q2

REPORT INFORMATION
  Report Type: Spontaneous
  Country: US (occurrence: US)
  Receive Date: 20130530
  Receipt Date: 20130530
  Transmission Date: 20140414
  Serious: No
  Sender: FDA-Public Use
  Company Number: US-PFIZER INC-2013162333

PATIENT
  Sex: Male

DRUGS (1)
  1. ZOLOFT [Suspect]
     Dosage: UNK
     Dates: end: 2013

REACTIONS (3)
  - Nasopharyngitis [Unknown]
  - Nasal congestion [Recovering/Resolving]
  - Withdrawal syndrome [Unknown]
